FAERS Safety Report 9562421 (Version 1)
Quarter: 2013Q3

REPORT INFORMATION
  Report Type: Spontaneous
  Country: US (occurrence: US)
  Receive Date: 20130927
  Receipt Date: 20130927
  Transmission Date: 20140515
  Serious: Yes (Disabling)
  Sender: FDA-Public Use
  Company Number: US-GLAXOSMITHKLINE-A1042467A

PATIENT
  Age: 49 Year
  Sex: Male

DRUGS (6)
  1. LAMICTAL [Suspect]
     Indication: ANXIETY
     Dosage: 800MG SEE DOSAGE TEXT
     Route: 048
  2. VITAMIN C [Concomitant]
  3. VITAMIN E [Concomitant]
  4. MELATONIN [Concomitant]
  5. KLONOPIN [Concomitant]
  6. IBUPROFEN [Concomitant]

REACTIONS (7)
  - Overdose [Unknown]
  - Hypotension [Not Recovered/Not Resolved]
  - Capillary nail refill test abnormal [Not Recovered/Not Resolved]
  - Pupillary reflex impaired [Not Recovered/Not Resolved]
  - Dysarthria [Not Recovered/Not Resolved]
  - Nausea [Not Recovered/Not Resolved]
  - Dizziness [Not Recovered/Not Resolved]
